FAERS Safety Report 25715895 (Version 2)
Quarter: 2025Q3

REPORT INFORMATION
  Report Type: Spontaneous
  Country: CN (occurrence: CN)
  Receive Date: 20250822
  Receipt Date: 20250829
  Transmission Date: 20251020
  Serious: Yes (Life-Threatening, Hospitalization)
  Sender: COHERUS
  Company Number: CN-SHANGHAI JUNSHI BIOSCIENCES CO., LTD.-CN2025015371

PATIENT

DRUGS (1)
  1. TORIPALIMAB [Suspect]
     Active Substance: TORIPALIMAB
     Indication: Breast cancer
     Dosage: 240 MG, EVERY 30 DAYS
     Route: 041
     Dates: start: 20250701, end: 20250730

REACTIONS (4)
  - Blood creatine phosphokinase increased [Not Recovered/Not Resolved]
  - Liver injury [Not Recovered/Not Resolved]
  - Dyslipidaemia [Not Recovered/Not Resolved]
  - Platelet count decreased [Not Recovered/Not Resolved]

NARRATIVE: CASE EVENT DATE: 20250805
